FAERS Safety Report 10541375 (Version 1)
Quarter: 2014Q4

REPORT INFORMATION
  Report Type: Spontaneous
  Country: US (occurrence: None)
  Receive Date: 20141010
  Receipt Date: 20141010
  Transmission Date: 20150529
  Serious: No
  Sender: FDA-Public Use
  Company Number: 163-POMAL-14073063

PATIENT
  Age: 68 Year
  Sex: Male

DRUGS (10)
  1. ASPIRIN EC (ACETYLSALICYLIC ACID) (UNKNOWN) [Concomitant]
  2. CHILDREN^S PAIN + FEVER (PARACETAMOL) (UNKNOWN) [Concomitant]
  3. ENOXAPARIN SODIUM (HEPARIN-FRACTION, SODIUM SALT) (UNKNOWN) [Concomitant]
  4. NEXIUM (ESOMEPRAZOLE) (UNKNOWN) [Concomitant]
  5. POMALYST [Suspect]
     Active Substance: POMALIDOMIDE
     Indication: PLASMA CELL MYELOMA
     Dosage: 4 MG, 21 IN 21 D, PO
     Route: 048
     Dates: start: 20131204
  6. CADUET (CADUET) (UNKNOWN) [Concomitant]
  7. CYMBALTA (DULOXETINE HYDROCHLORIDE) (UNKNOWN) [Concomitant]
  8. COUMADIN [Concomitant]
     Active Substance: WARFARIN SODIUM
  9. LEVAQUIN (LEVOFLOXACIN) (UNKNOWN) [Concomitant]
  10. LORAZEPAM (LORAZEPAM) (UNKNOWN)] [Concomitant]

REACTIONS (1)
  - Abdominal discomfort [None]
